FAERS Safety Report 9175112 (Version 1)
Quarter: 2013Q1

REPORT INFORMATION
  Report Type: Spontaneous
  Country: GB (occurrence: None)
  Receive Date: 20130315
  Receipt Date: 20130315
  Transmission Date: 20140127
  Serious: Yes (Other)
  Sender: FDA-Public Use
  Company Number: 2013-04137

PATIENT
  Age: 46 Year
  Sex: Male
  Weight: 75 kg

DRUGS (1)
  1. LOSARTAN POTASSIUM (UNKNOWN) (LOSARTAN POTASSIUM) UNK, UNK UNK [Suspect]
     Indication: HYPERTENSION
     Route: 048
     Dates: start: 20121116, end: 20130213

REACTIONS (1)
  - Dyspnoea exertional [None]
